FAERS Safety Report 24184789 (Version 2)
Quarter: 2024Q3

REPORT INFORMATION
  Report Type: Report from Study
  Country: BR (occurrence: BR)
  Receive Date: 20240807
  Receipt Date: 20240809
  Transmission Date: 20241016
  Serious: Yes (Hospitalization, Other)
  Sender: JOHNSON AND JOHNSON
  Company Number: BR-JNJFOC-20240810786

PATIENT
  Age: 45 Year
  Sex: Female
  Weight: 98 kg

DRUGS (2)
  1. INFLIXIMAB [Suspect]
     Active Substance: INFLIXIMAB
     Indication: Ankylosing spondylitis
     Route: 041
  2. REMICADE [Suspect]
     Active Substance: INFLIXIMAB
     Indication: Ankylosing spondylitis
     Route: 041
     Dates: start: 2020

REACTIONS (4)
  - Appendicitis [Unknown]
  - Sepsis [Unknown]
  - Tuberculosis [Unknown]
  - Depression [Unknown]

NARRATIVE: CASE EVENT DATE: 20210601
